FAERS Safety Report 5369999-3 (Version None)
Quarter: 2007Q2

REPORT INFORMATION
  Report Type: 
  Country: None (occurrence: None)
  Receive Date: 20070626
  Receipt Date: 20070622
  Transmission Date: 20071010
  Serious: Yes (Death, Disabling)
  Sender: FDA-Public Use
  Company Number: US-BAYER-200711245BWH

PATIENT
  Sex: Female

DRUGS (1)
  1. TRASYLOL [Suspect]
     Indication: CARDIAC OPERATION
     Dates: start: 20050413

REACTIONS (9)
  - ADVERSE EVENT [None]
  - ANXIETY [None]
  - ASTHENIA [None]
  - GENERAL PHYSICAL CONDITION ABNORMAL [None]
  - INJURY [None]
  - MENTAL IMPAIRMENT [None]
  - PAIN [None]
  - RENAL FAILURE [None]
  - TENSION [None]
